FAERS Safety Report 8116386-0 (Version None)
Quarter: 2012Q1

REPORT INFORMATION
  Report Type: 
  Country: None (occurrence: None)
  Receive Date: 20120206
  Receipt Date: 20120130
  Transmission Date: 20120608
  Serious: Yes (Life-Threatening, Hospitalization)
  Sender: FDA-Public Use
  Company Number: AT-GLAXOSMITHKLINE-B0779059A

PATIENT
  Age: 81 Year
  Sex: Male

DRUGS (8)
  1. LAMICTAL [Suspect]
     Indication: PRODUCT USED FOR UNKNOWN INDICATION
     Route: 065
     Dates: start: 20090101, end: 20111107
  2. LITHIUM CARBONATE [Suspect]
     Indication: PRODUCT USED FOR UNKNOWN INDICATION
     Route: 065
     Dates: start: 20090101, end: 20111107
  3. SEROQUEL [Suspect]
     Indication: PRODUCT USED FOR UNKNOWN INDICATION
     Route: 065
     Dates: start: 20111031, end: 20111107
  4. SPIRONOLACTONE [Suspect]
     Indication: PRODUCT USED FOR UNKNOWN INDICATION
     Dosage: 25MG PER DAY
     Route: 065
     Dates: start: 20111030, end: 20111106
  5. LORAZEPAM [Suspect]
     Indication: PRODUCT USED FOR UNKNOWN INDICATION
     Route: 065
     Dates: start: 20111102, end: 20111130
  6. DEPAKENE [Suspect]
     Indication: PRODUCT USED FOR UNKNOWN INDICATION
     Dosage: 800MG PER DAY
     Route: 065
     Dates: start: 20111102, end: 20111104
  7. DIGITOXIN TAB [Concomitant]
     Dosage: .07MG PER DAY
     Dates: start: 20100101, end: 20111106
  8. MARCUMAR [Concomitant]
     Dosage: 1.5MG PER DAY
     Dates: start: 20111018

REACTIONS (11)
  - DEPRESSION [None]
  - COGNITIVE DISORDER [None]
  - PNEUMONIA [None]
  - BALANCE DISORDER [None]
  - DYSPHORIA [None]
  - DELIRIUM [None]
  - AGITATION [None]
  - SPEECH DISORDER [None]
  - DISORIENTATION [None]
  - HYPERVIGILANCE [None]
  - SOMNOLENCE [None]
